FAERS Safety Report 15330090 (Version 1)
Quarter: 2018Q3

REPORT INFORMATION
  Report Type: Spontaneous
  Country: US (occurrence: US)
  Receive Date: 20180829
  Receipt Date: 20180829
  Transmission Date: 20181010
  Serious: No
  Sender: FDA-Public Use
  Company Number: US-AKRON, INC.-2054411

PATIENT
  Age: 57 Year
  Sex: Female

DRUGS (1)
  1. LACTULOSE ORAL SOLUTION [Suspect]
     Active Substance: LACTULOSE
     Route: 048

REACTIONS (1)
  - Rectal haemorrhage [Unknown]
